FAERS Safety Report 13865435 (Version 2)
Quarter: 2019Q3

REPORT INFORMATION
  Report Type: Report from Study
  Country: US (occurrence: US)
  Receive Date: 20170814
  Receipt Date: 20190814
  Transmission Date: 20191004
  Serious: No
  Sender: FDA-Public Use
  Company Number: US-AEGERION PHARMACEUTICAL, INC-AEGR003018

PATIENT
  Age: 70 Year
  Sex: Male

DRUGS (18)
  1. JUXTAPID [Suspect]
     Active Substance: LOMITAPIDE MESYLATE
     Dosage: 5 MG, QOD
     Dates: start: 20140924, end: 20141013
  2. JUXTAPID [Suspect]
     Active Substance: LOMITAPIDE MESYLATE
     Dosage: UNK
     Dates: start: 20150411, end: 20150413
  3. ATENOLOL. [Concomitant]
     Active Substance: ATENOLOL
     Indication: HYPERTENSION
     Dosage: 25 MG, QHS
     Route: 048
     Dates: start: 20140220
  4. HCTZ [Concomitant]
     Active Substance: HYDROCHLOROTHIAZIDE
     Indication: CARDIAC FAILURE CONGESTIVE
     Dosage: 25 MG, QD
     Route: 048
     Dates: start: 20141121
  5. LOSARTAN. [Concomitant]
     Active Substance: LOSARTAN
     Indication: HYPERTENSION
     Dosage: 100 MG, QD
     Route: 048
     Dates: start: 20140220
  6. ASPIRIN. [Concomitant]
     Active Substance: ASPIRIN
     Indication: CARDIOVASCULAR EVENT PROPHYLAXIS
     Dosage: 325 MG, QD
     Route: 048
     Dates: start: 20140220
  7. IMDUR [Concomitant]
     Active Substance: ISOSORBIDE MONONITRATE
     Indication: HYPERTENSION
     Dosage: 60 MG, QD
     Route: 048
     Dates: start: 20140220, end: 2015
  8. JUXTAPID [Suspect]
     Active Substance: LOMITAPIDE MESYLATE
     Dosage: 5 MG, QD
     Dates: start: 20141014, end: 20150410
  9. JUXTAPID [Suspect]
     Active Substance: LOMITAPIDE MESYLATE
     Dosage: 10 MG, QD
     Dates: start: 20160208, end: 20161209
  10. ATENOLOL. [Concomitant]
     Active Substance: ATENOLOL
     Dosage: 50 MG, QD
     Route: 048
     Dates: start: 20140220
  11. NPH INSULIN [Concomitant]
     Active Substance: INSULIN BEEF
     Indication: DIABETES MELLITUS
     Dosage: 50 UI, BID
     Route: 058
     Dates: start: 19950811
  12. JUXTAPID [Suspect]
     Active Substance: LOMITAPIDE MESYLATE
     Dosage: 5 MG, QOD
     Dates: start: 20150414, end: 20150528
  13. AMLODIPINE [Concomitant]
     Active Substance: AMLODIPINE BESYLATE
     Indication: MYOCARDIAL ISCHAEMIA
     Dosage: 10 MG, QD
     Route: 048
     Dates: start: 20130314
  14. OMEPRAZOLE. [Concomitant]
     Active Substance: OMEPRAZOLE
     Indication: GASTROOESOPHAGEAL REFLUX DISEASE
     Dosage: 40 MG, QD
     Route: 048
     Dates: start: 20160323
  15. AMLODIPINE [Concomitant]
     Active Substance: AMLODIPINE BESYLATE
     Dosage: UNK
  16. LASIX [Concomitant]
     Active Substance: FUROSEMIDE
     Indication: CARDIAC FAILURE CONGESTIVE
     Dosage: 40 MG, QD
     Route: 048
     Dates: start: 20140220
  17. JUXTAPID [Suspect]
     Active Substance: LOMITAPIDE MESYLATE
     Indication: TYPE IIA HYPERLIPIDAEMIA
     Dosage: 5 MG, QD
     Dates: start: 20140826, end: 20140923
  18. POTASSIUM CHLORIDE. [Concomitant]
     Active Substance: POTASSIUM CHLORIDE
     Indication: CARDIAC FAILURE CONGESTIVE
     Dosage: 20 MEQ, QD
     Route: 048
     Dates: start: 20140220

REACTIONS (2)
  - Dyspepsia [Recovered/Resolved]
  - Therapy cessation [Not Recovered/Not Resolved]

NARRATIVE: CASE EVENT DATE: 20160323
